FAERS Safety Report 7494954-7 (Version None)
Quarter: 2011Q2

REPORT INFORMATION
  Report Type: 
  Country: None (occurrence: None)
  Receive Date: 20110520
  Receipt Date: 20100621
  Transmission Date: 20111010
  Serious: Yes (Hospitalization, Other)
  Sender: FDA-Public Use
  Company Number: PHHY2010CN21588

PATIENT
  Age: 71 Year
  Sex: Male

DRUGS (11)
  1. NILOTINIB [Concomitant]
     Dosage: 600 MG TWICE DAILY FOR 4 MONTHS
     Route: 048
  2. SPRYCEL [Concomitant]
     Dosage: 70 MG
     Dates: start: 20080701
  3. SPRYCEL [Concomitant]
     Dosage: 70 MG ORALLY
     Route: 048
     Dates: end: 20080401
  4. CALCIUM / CALCIUM FOLINATE COLOCLYSIS [Concomitant]
  5. THYMOSIN [Concomitant]
     Dosage: 100 MG, DAILY
  6. IMATINIB MESYLATE [Suspect]
     Dosage: 600 MG DAILY
     Dates: end: 20080401
  7. G-CSF [Concomitant]
  8. EPOGEN [Concomitant]
     Indication: BONE MARROW FAILURE
  9. IMATINIB MESYLATE [Suspect]
     Indication: CHRONIC MYELOID LEUKAEMIA
     Dosage: 400 MG, DAILY
  10. METHYLPREDNISOLONE [Concomitant]
     Dosage: 80 MG B.D
  11. SPRYCEL [Concomitant]
     Dosage: 70 MG DAILY

REACTIONS (4)
  - DRUG RESISTANCE [None]
  - PYREXIA [None]
  - SPLENOMEGALY [None]
  - CHRONIC MYELOID LEUKAEMIA [None]
